FAERS Safety Report 21066246 (Version 1)
Quarter: 2022Q3

REPORT INFORMATION
  Report Type: Spontaneous
  Country: US (occurrence: US)
  Receive Date: 20220711
  Receipt Date: 20220711
  Transmission Date: 20221027
  Serious: No
  Sender: FDA-Public Use
  Company Number: US-INTRA-CELLULAR THERAPIES, INC.-2022ICT00344

PATIENT
  Sex: Female

DRUGS (4)
  1. CAPLYTA [Suspect]
     Active Substance: LUMATEPERONE
     Dosage: UNK
  2. LITHIUM [Suspect]
     Active Substance: LITHIUM
     Dosage: UNK
  3. VRAYLAR [Suspect]
     Active Substance: CARIPRAZINE
     Dosage: UNK
  4. AMILORIDE [Suspect]
     Active Substance: AMILORIDE
     Dosage: UNK

REACTIONS (5)
  - Muscular weakness [Unknown]
  - Asthenia [Unknown]
  - Electrolyte imbalance [Unknown]
  - Dyskinesia [Unknown]
  - Muscle twitching [Unknown]
